FAERS Safety Report 8325140-6 (Version None)
Quarter: 2012Q2

REPORT INFORMATION
  Report Type: 
  Country: None (occurrence: None)
  Receive Date: 20120501
  Receipt Date: 20120418
  Transmission Date: 20120825
  Serious: Yes (Hospitalization)
  Sender: FDA-Public Use
  Company Number: FR-CELGENEUS-056-21880-12042099

PATIENT
  Sex: Female
  Weight: 59.9 kg

DRUGS (9)
  1. OXYCONORM [Concomitant]
     Indication: PAIN
     Route: 048
     Dates: start: 20111129
  2. DEXAMETHASONE [Concomitant]
     Indication: MULTIPLE MYELOMA
     Route: 048
  3. BISOPROLOL FUMARATE [Concomitant]
     Dosage: 10 MILLIGRAM
     Route: 048
  4. ASPIRIN [Concomitant]
     Indication: PROPHYLAXIS
     Dosage: 160 MILLIGRAM
     Route: 065
  5. REVLIMID [Suspect]
     Indication: MULTIPLE MYELOMA
     Dosage: 15 MILLIGRAM
     Route: 048
     Dates: start: 20111018
  6. REVLIMID [Suspect]
     Dosage: 15 MILLIGRAM
     Route: 048
     Dates: start: 20120103, end: 20120123
  7. PRIMPERAN TAB [Concomitant]
     Indication: NAUSEA
     Route: 048
     Dates: start: 20120201
  8. DISOPYRAMIDE PHOSPHATE [Concomitant]
     Indication: PROPHYLAXIS
     Dosage: 250 MILLIGRAM
     Route: 048
  9. ALLOPURINOL [Concomitant]
     Dosage: 100 MILLIGRAM
     Route: 048

REACTIONS (2)
  - GENERAL PHYSICAL HEALTH DETERIORATION [None]
  - DECREASED APPETITE [None]
